FAERS Safety Report 16362049 (Version 12)
Quarter: 2023Q1

REPORT INFORMATION
  Report Type: Spontaneous
  Country: US (occurrence: US)
  Receive Date: 20190528
  Receipt Date: 20230316
  Transmission Date: 20230418
  Serious: No
  Sender: FDA-Public Use
  Company Number: US-PFIZER INC-2019226698

PATIENT
  Age: 76 Year
  Sex: Female

DRUGS (3)
  1. EUCRISA [Suspect]
     Active Substance: CRISABOROLE
     Indication: Dermatitis atopic
     Dosage: APPLY SMALL AMOUNT TO AFFECTED AREA ONCE A DAY
     Route: 061
  2. EUCRISA [Suspect]
     Active Substance: CRISABOROLE
     Indication: Rash
     Dosage: APPLY TO AFFECTED AREA TWICE A DAY
     Route: 061
  3. EUCRISA [Suspect]
     Active Substance: CRISABOROLE
     Dosage: APPLY SMALL AMOUNT TO AFFECTED AREA TOPICALLY ONCE A DAY
     Route: 061

REACTIONS (2)
  - Application site paraesthesia [Unknown]
  - Off label use [Unknown]
